FAERS Safety Report 21778690 (Version 1)
Quarter: 2022Q4

REPORT INFORMATION
  Report Type: Spontaneous
  Country: US (occurrence: US)
  Receive Date: 20221226
  Receipt Date: 20221226
  Transmission Date: 20230113
  Serious: No
  Sender: FDA-Public Use
  Company Number: US-MIGRATION_PFIZER-2022BHV003252

PATIENT
  Age: 73 Year
  Sex: Female
  Weight: 64.468 kg

DRUGS (2)
  1. NURTEC ODT [Suspect]
     Active Substance: RIMEGEPANT SULFATE
     Indication: Migraine with aura
     Dosage: PATIENT HAS BEEN TAKING IT FOR A MONTH
     Route: 048
     Dates: start: 202210
  2. ZETIA [Concomitant]
     Active Substance: EZETIMIBE
     Indication: Gastrooesophageal reflux disease
     Route: 065

REACTIONS (1)
  - Dyspnoea [Not Recovered/Not Resolved]

NARRATIVE: CASE EVENT DATE: 20221113
